FAERS Safety Report 9736662 (Version 2)
Quarter: 2015Q3

REPORT INFORMATION
  Report Type: Spontaneous
  Country: US (occurrence: US)
  Receive Date: 20131206
  Receipt Date: 20150804
  Transmission Date: 20151125
  Serious: No
  Sender: FDA-Public Use
  Company Number: US-GILEAD-2009-0022842

PATIENT
  Age: 67 Year
  Sex: Female
  Weight: 72.57 kg

DRUGS (11)
  1. COUMADIN [Concomitant]
     Active Substance: WARFARIN SODIUM
  2. ATACAND [Concomitant]
     Active Substance: CANDESARTAN CILEXETIL
  3. DAILY MULTIVITAMIN [Concomitant]
     Active Substance: VITAMINS
  4. LIPITOR [Concomitant]
     Active Substance: ATORVASTATIN CALCIUM
  5. LETAIRIS [Suspect]
     Active Substance: AMBRISENTAN
     Indication: PULMONARY ARTERIAL HYPERTENSION
     Route: 048
     Dates: start: 20071224
  6. ALDACTONE [Concomitant]
     Active Substance: SPIRONOLACTONE
  7. CALCIUM [Concomitant]
     Active Substance: CALCIUM
  8. LANOXIN [Concomitant]
     Active Substance: DIGOXIN
  9. VITAMIN D [Concomitant]
     Active Substance: CHOLECALCIFEROL
  10. ACIPHEX [Concomitant]
     Active Substance: RABEPRAZOLE SODIUM
  11. OXYGEN. [Concomitant]
     Active Substance: OXYGEN

REACTIONS (1)
  - Oedema peripheral [Unknown]
